FAERS Safety Report 9534988 (Version 2)
Quarter: 2013Q3

REPORT INFORMATION
  Report Type: Spontaneous
  Country: BR (occurrence: BR)
  Receive Date: 20130918
  Receipt Date: 20130923
  Transmission Date: 20140515
  Serious: Yes (Other)
  Sender: FDA-Public Use
  Company Number: BR-PFIZER INC-2013265469

PATIENT
  Age: 58 Year
  Sex: Female
  Weight: 56 kg

DRUGS (5)
  1. LYRICA [Suspect]
     Indication: NEURALGIA
     Dosage: 1 CAPSULE OF STRENGTH 75 MG, 2X/DAY
     Route: 048
     Dates: start: 20130911, end: 20130912
  2. GALVUS [Concomitant]
     Indication: DIABETES MELLITUS
     Dosage: 1 TABLET OF STRENGHT 50 MG AFTER EACH MEAL
     Dates: start: 201306
  3. ALLEGRA [Concomitant]
     Indication: DERMATITIS ALLERGIC
     Dosage: 1 DF WEEKLY, AS NEEDED
     Dates: start: 201307
  4. RIVOTRIL [Concomitant]
     Indication: PANIC REACTION
     Dosage: 0.5 TABLET, 1X/DAY, WHEN NEEDED
  5. RIVOTRIL [Concomitant]
     Indication: SLEEP DISORDER

REACTIONS (23)
  - Eyelid ptosis [Not Recovered/Not Resolved]
  - Confusional state [Unknown]
  - Swelling face [Unknown]
  - Panic disorder [Unknown]
  - Speech disorder [Unknown]
  - Dysphagia [Unknown]
  - Vision blurred [Not Recovered/Not Resolved]
  - Fatigue [Unknown]
  - Fear [Unknown]
  - Foreign body sensation in eyes [Not Recovered/Not Resolved]
  - Ocular hyperaemia [Not Recovered/Not Resolved]
  - Malaise [Unknown]
  - Nervous system disorder [Unknown]
  - Eye disorder [Not Recovered/Not Resolved]
  - Deformity [Unknown]
  - Sedation [Unknown]
  - Vision blurred [Not Recovered/Not Resolved]
  - Photophobia [Not Recovered/Not Resolved]
  - Eye pain [Not Recovered/Not Resolved]
  - Mental disorder [Unknown]
  - Eye swelling [Not Recovered/Not Resolved]
  - Hypermetropia [Not Recovered/Not Resolved]
  - Dry eye [Not Recovered/Not Resolved]
